FAERS Safety Report 6818478-2 (Version None)
Quarter: 2010Q3

REPORT INFORMATION
  Report Type: 
  Country: None (occurrence: None)
  Receive Date: 20100706
  Receipt Date: 20080505
  Transmission Date: 20110219
  Serious: Yes (Other)
  Sender: FDA-Public Use
  Company Number: US-PFIZER INC-2008039064

PATIENT
  Sex: Male
  Weight: 90.7 kg

DRUGS (4)
  1. AZITHROMYCIN [Suspect]
     Indication: BRONCHITIS
     Route: 048
     Dates: end: 20070401
  2. DEPAKOTE [Suspect]
     Indication: EPILEPSY
     Route: 048
     Dates: start: 20060401
  3. DEPAKOTE [Suspect]
     Route: 048
     Dates: end: 20060401
  4. GALENIC /CODEINE/PROMETHAZINE/ [Suspect]
     Indication: BRONCHITIS
     Route: 048
     Dates: end: 20070401

REACTIONS (2)
  - CONVULSION [None]
  - MEDICATION RESIDUE [None]
